APPROVED DRUG PRODUCT: LORATADINE
Active Ingredient: LORATADINE
Strength: 10MG
Dosage Form/Route: TABLET;ORAL
Application: A210722 | Product #001
Applicant: GRANULES INDIA LTD
Approved: Dec 23, 2019 | RLD: No | RS: No | Type: OTC